FAERS Safety Report 23015876 (Version 1)
Quarter: 2023Q4

REPORT INFORMATION
  Report Type: Spontaneous
  Country: PT (occurrence: PT)
  Receive Date: 20231002
  Receipt Date: 20231002
  Transmission Date: 20240109
  Serious: Yes (Hospitalization, Other)
  Sender: FDA-Public Use
  Company Number: PT-BAYER-2023A133804

PATIENT
  Age: 55 Year
  Sex: Male

DRUGS (1)
  1. NEXAVAR [Suspect]
     Active Substance: SORAFENIB
     Indication: Hepatocellular carcinoma
     Dosage: 400 MG/DAY

REACTIONS (25)
  - Tumour lysis syndrome [Recovering/Resolving]
  - Asthenia [Recovering/Resolving]
  - Fatigue [Recovering/Resolving]
  - COVID-19 [Recovering/Resolving]
  - Headache [Recovering/Resolving]
  - Cough [Recovering/Resolving]
  - Confusional state [None]
  - Ascites [None]
  - Bicytopenia [None]
  - Fibrin D dimer increased [None]
  - Blood alkaline phosphatase increased [None]
  - Gamma-glutamyltransferase increased [None]
  - Aspartate aminotransferase increased [None]
  - Alanine aminotransferase increased [None]
  - Blood lactate dehydrogenase increased [None]
  - Blood bilirubin increased [None]
  - Alpha 1 foetoprotein increased [None]
  - Blood creatinine increased [None]
  - Hyperuricaemia [None]
  - Hyperphosphataemia [None]
  - Calcium ionised increased [None]
  - Hyperkalaemia [None]
  - Metabolic acidosis [None]
  - Electrocardiogram T wave peaked [None]
  - Off label use [None]
